FAERS Safety Report 11357053 (Version 1)
Quarter: 2015Q3

REPORT INFORMATION
  Report Type: Spontaneous
  Country: US (occurrence: US)
  Receive Date: 20150803
  Receipt Date: 20150803
  Transmission Date: 20151125
  Serious: Yes (Other)
  Sender: FDA-Public Use
  Company Number: US-ELI_LILLY_AND_COMPANY-US201004000703

PATIENT
  Age: 26 Year
  Sex: Male

DRUGS (3)
  1. COGENTIN [Concomitant]
     Active Substance: BENZTROPINE MESYLATE
     Dosage: UNK, AS NEEDED
  2. ZYPREXA ZYDIS [Suspect]
     Active Substance: OLANZAPINE
     Indication: SCHIZOPHRENIA
     Dosage: 30 MG, DAILY (1/D)
     Dates: start: 201001
  3. RISPERIDONE. [Concomitant]
     Active Substance: RISPERIDONE

REACTIONS (4)
  - Prescribed overdose [Not Recovered/Not Resolved]
  - Weight increased [Not Recovered/Not Resolved]
  - Hypersomnia [Not Recovered/Not Resolved]
  - Intentional product misuse [Not Recovered/Not Resolved]

NARRATIVE: CASE EVENT DATE: 201001
